FAERS Safety Report 9015737 (Version 2)
Quarter: 2013Q1

REPORT INFORMATION
  Report Type: Spontaneous
  Country: AT (occurrence: AT)
  Receive Date: 20130116
  Receipt Date: 20130125
  Transmission Date: 20140127
  Serious: Yes (Other)
  Sender: FDA-Public Use
  Company Number: AT-ROCHE-1178834

PATIENT
  Age: 70 Year
  Sex: Female

DRUGS (3)
  1. MABTHERA [Suspect]
     Indication: B-CELL LYMPHOMA
     Route: 065
  2. SOLUDACORTIN [Concomitant]
     Dosage: 50MG/100ML NACL
     Route: 065
  3. DIBONDRIN [Concomitant]
     Dosage: 1AMP/200MG NACL
     Route: 065

REACTIONS (3)
  - Hypersensitivity [Unknown]
  - Dyspnoea [Recovered/Resolved]
  - Flushing [Recovered/Resolved]
